FAERS Safety Report 19053017 (Version 1)
Quarter: 2021Q1

REPORT INFORMATION
  Report Type: Spontaneous
  Country: US (occurrence: US)
  Receive Date: 20210324
  Receipt Date: 20210324
  Transmission Date: 20210420
  Serious: Yes (Death, Hospitalization, Other)
  Sender: FDA-Public Use
  Company Number: US-REGENERON PHARMACEUTICALS, INC.-2021-34491

PATIENT

DRUGS (3)
  1. EYLEA [Suspect]
     Active Substance: AFLIBERCEPT
     Indication: NEOVASCULAR AGE-RELATED MACULAR DEGENERATION
     Dosage: UNK UNK, MONTHLY
     Dates: start: 201808, end: 201808
  2. EYLEA [Suspect]
     Active Substance: AFLIBERCEPT
     Dosage: UNK, Q8W
     Dates: start: 20201116, end: 20201116
  3. EYLEA [Suspect]
     Active Substance: AFLIBERCEPT
     Dosage: UNK, Q8W
     Dates: start: 202008, end: 202008

REACTIONS (8)
  - Cardio-respiratory arrest [Fatal]
  - Dementia [Fatal]
  - Product dose omission issue [Unknown]
  - Atrial fibrillation [Fatal]
  - Fall [Unknown]
  - Coronavirus infection [Fatal]
  - Pneumonia [Recovered/Resolved]
  - Failure to thrive [Fatal]

NARRATIVE: CASE EVENT DATE: 20201201
